FAERS Safety Report 18397118 (Version 1)
Quarter: 2020Q4

REPORT INFORMATION
  Report Type: Spontaneous
  Country: US (occurrence: US)
  Receive Date: 20201019
  Receipt Date: 20201019
  Transmission Date: 20210114
  Serious: Yes (Disabling, Other)
  Sender: FDA-Public Use
  Company Number: US-009507513-2010USA005934

PATIENT
  Age: 54 Year

DRUGS (1)
  1. TICE BCG [Suspect]
     Active Substance: BACILLUS CALMETTE-GUERIN SUBSTRAIN TICE LIVE ANTIGEN
     Indication: BLADDER CANCER
     Dosage: UNK
     Route: 043
     Dates: start: 20200910, end: 20200915

REACTIONS (1)
  - Disseminated Bacillus Calmette-Guerin infection [Not Recovered/Not Resolved]

NARRATIVE: CASE EVENT DATE: 20201007
